FAERS Safety Report 6485134-2 (Version None)
Quarter: 2009Q4

REPORT INFORMATION
  Report Type: 
  Country: None (occurrence: None)
  Receive Date: 20091204
  Receipt Date: 20091125
  Transmission Date: 20100525
  Serious: Yes (Hospitalization, Other)
  Sender: FDA-Public Use
  Company Number: LTI2009A00338

PATIENT
  Age: 55 Year
  Sex: Male

DRUGS (1)
  1. ACTOS [Suspect]
     Indication: TYPE 2 DIABETES MELLITUS
     Dosage: (1 D), ORAL
     Route: 048
     Dates: end: 20090701

REACTIONS (2)
  - ANAEMIA [None]
  - RECTAL HAEMORRHAGE [None]
